FAERS Safety Report 18550304 (Version 1)
Quarter: 2020Q4

REPORT INFORMATION
  Report Type: Spontaneous
  Country: US (occurrence: US)
  Receive Date: 20201126
  Receipt Date: 20201126
  Transmission Date: 20210114
  Serious: Yes (Other)
  Sender: FDA-Public Use
  Company Number: US-PFIZER INC-2018464108

PATIENT
  Age: 58 Year
  Sex: Female
  Weight: 108.8 kg

DRUGS (11)
  1. VFEND [Suspect]
     Active Substance: VORICONAZOLE
     Indication: NEOPLASM MALIGNANT
     Dosage: UNK UNK, 2X/DAY (TAKE 1 AND A HALF TABLETS ORALLY EVERY 12 HOURS)
     Route: 048
     Dates: start: 2018
  2. SENNA PLUS [Concomitant]
     Active Substance: DOCUSATE SODIUM\SENNOSIDES\SENNOSIDES A AND B
     Indication: NEOPLASM MALIGNANT
     Dosage: 100 MG, DAILY (50 MG TABLET TAKE 2 DAILY)
  3. ACYCLOVIR [ACICLOVIR] [Concomitant]
     Active Substance: ACYCLOVIR
     Indication: NEOPLASM MALIGNANT
     Dosage: 400 MG, 2X/DAY
  4. VFEND [Suspect]
     Active Substance: VORICONAZOLE
     Dosage: 300 MG, 2X/DAY (TOOK 200 MG VORICONAZOLE TABLET AND 1 AND A HALF TABLET EVERY 12 HOURS)
  5. VFEND [Suspect]
     Active Substance: VORICONAZOLE
     Dosage: 200 MG, 2X/DAY (TWICE A DAY)
     Route: 048
  6. LORATADINE. [Concomitant]
     Active Substance: LORATADINE
     Indication: NEOPLASM MALIGNANT
     Dosage: 10 MG, 1X/DAY
  7. GABAPENTIN. [Concomitant]
     Active Substance: GABAPENTIN
     Indication: NEUROPATHY PERIPHERAL
     Dosage: 300 MG, 3X/DAY (300 MG (3 CAPSULES 900 MG) 3 TIMES A DAY)
  8. HYDROMORPHONE [Concomitant]
     Active Substance: HYDROMORPHONE
     Indication: NEOPLASM MALIGNANT
     Dosage: 2 MG, 3X/DAY (EVERY 8 HOURS)
  9. VORICONAZOLE. [Concomitant]
     Active Substance: VORICONAZOLE
     Dosage: UNK
  10. DULOXETINE. [Concomitant]
     Active Substance: DULOXETINE
     Indication: NEOPLASM MALIGNANT
     Dosage: 60 MG, 1X/DAY
  11. METHOCARBAMOL. [Concomitant]
     Active Substance: METHOCARBAMOL
     Indication: NEOPLASM MALIGNANT
     Dosage: 500 MG, AS NEEDED

REACTIONS (3)
  - Hypertension [Unknown]
  - Weight decreased [Unknown]
  - Off label use [Unknown]

NARRATIVE: CASE EVENT DATE: 20201118
